FAERS Safety Report 9109229 (Version 2)
Quarter: 2013Q1

REPORT INFORMATION
  Report Type: Spontaneous
  Country: NL (occurrence: NL)
  Receive Date: 20130222
  Receipt Date: 20130311
  Transmission Date: 20140127
  Serious: No
  Sender: FDA-Public Use
  Company Number: PHHY2013NL017217

PATIENT
  Sex: Male

DRUGS (3)
  1. ZOMETA [Suspect]
     Indication: METASTASIS
     Dosage: 4 MG/100 ML ONCE PER 42 DAYS
     Route: 042
     Dates: start: 20111003
  2. ZOMETA [Suspect]
     Dosage: 4 MG/100 ML ONCE PER 42 DAYS
     Route: 042
     Dates: start: 20121203
  3. ZOMETA [Suspect]
     Dosage: 4 MG/100 ML ONCE PER 42 DAYS
     Route: 042
     Dates: start: 20130117

REACTIONS (1)
  - Drug administration error [Unknown]
